FAERS Safety Report 11736962 (Version 1)
Quarter: 2015Q4

REPORT INFORMATION
  Report Type: Spontaneous
  Country: US (occurrence: US)
  Receive Date: 20151110
  Receipt Date: 20151110
  Transmission Date: 20160304
  Serious: No
  Sender: FDA-Public Use
  Company Number: US-ELI_LILLY_AND_COMPANY-US201204005733

PATIENT
  Age: 61 Year
  Sex: Female

DRUGS (2)
  1. FORTEO [Suspect]
     Active Substance: TERIPARATIDE
     Indication: OSTEOPOROSIS
     Dosage: 20 UG, QD
     Dates: start: 20120108
  2. FORTEO [Suspect]
     Active Substance: TERIPARATIDE
     Dosage: 20 UG, QD
     Dates: end: 201205

REACTIONS (9)
  - Myalgia [Unknown]
  - Pain in extremity [Recovering/Resolving]
  - Burning sensation [Not Recovered/Not Resolved]
  - Fatigue [Unknown]
  - Erythema [Recovered/Resolved]
  - Arthralgia [Unknown]
  - Feeling hot [Not Recovered/Not Resolved]
  - Nausea [Unknown]
  - Urticaria [Recovered/Resolved]

NARRATIVE: CASE EVENT DATE: 201204
